FAERS Safety Report 8313284-4 (Version None)
Quarter: 2012Q2

REPORT INFORMATION
  Report Type: 
  Country: None (occurrence: None)
  Receive Date: 20120426
  Receipt Date: 20120418
  Transmission Date: 20120825
  Serious: Yes (Hospitalization)
  Sender: FDA-Public Use
  Company Number: US-BAYER-201032460NA

PATIENT
  Age: 32 Year
  Sex: Female
  Weight: 82 kg

DRUGS (16)
  1. YASMIN [Suspect]
     Indication: MENOMETRORRHAGIA
     Dosage: UNK
     Dates: start: 20080407
  2. MULTIVITAMINS PLUS IRON [Concomitant]
     Dosage: UNK UNK, QD
     Route: 048
  3. ASPIRIN [Concomitant]
  4. CAPSAICIN [Concomitant]
     Dosage: UNK UNK, PRN
     Route: 045
  5. YAZ [Suspect]
     Dosage: UNK UNK, UNK
     Route: 048
     Dates: start: 20070501
  6. INHALER [Concomitant]
  7. CALCIUM CARBONATE [Concomitant]
     Dosage: UNK UNK, PRN
     Route: 048
  8. DEFENSE [Concomitant]
  9. YASMIN [Suspect]
     Indication: DYSMENORRHOEA
     Dosage: UNK UNK, UNK
     Route: 048
  10. DROSPIRENONE AND ETHINYL ESTRADIOL [Suspect]
     Dosage: UNK UNK, UNK
     Route: 048
     Dates: start: 20081101
  11. ASCORBIC ACID [Concomitant]
  12. LEXAPRO [Concomitant]
     Dosage: UNK
  13. METFORMIN HCL [Concomitant]
     Dosage: UNK
  14. ASTELIN [Concomitant]
     Dosage: UNK UNK, PRN
     Route: 045
  15. YASMIN [Suspect]
     Indication: UTERINE LEIOMYOMA
  16. IBUPROFEN (ADVIL) [Concomitant]

REACTIONS (2)
  - PULMONARY EMBOLISM [None]
  - THROMBOSIS [None]
